FAERS Safety Report 5374148-1 (Version None)
Quarter: 2007Q2

REPORT INFORMATION
  Report Type: 
  Country: None (occurrence: None)
  Receive Date: 20070627
  Receipt Date: 20070615
  Transmission Date: 20071010
  Serious: Yes (Hospitalization)
  Sender: FDA-Public Use
  Company Number: SPV1-2007-03425

PATIENT

DRUGS (1)
  1. 433 CARBAMAZEPINE [Suspect]

REACTIONS (3)
  - COMA [None]
  - POISONING [None]
  - SUICIDE ATTEMPT [None]
